FAERS Safety Report 4527083-2 (Version None)
Quarter: 2004Q4

REPORT INFORMATION
  Report Type: 
  Country: None (occurrence: None)
  Receive Date: 20041129
  Receipt Date: 20040707
  Transmission Date: 20050328
  Serious: Yes (Hospitalization, Disabling)
  Sender: FDA-Public Use
  Company Number: USA020414476

PATIENT
  Age: 39 Year
  Sex: Male
  Weight: 77 kg

DRUGS (3)
  1. ZYPREXA [Suspect]
     Indication: DEPRESSION
     Dates: start: 20001201, end: 20010701
  2. PAXIL [Concomitant]
  3. CONCERTA [Concomitant]

REACTIONS (4)
  - ANXIETY [None]
  - DIABETES MELLITUS [None]
  - SUICIDAL IDEATION [None]
  - WEIGHT DECREASED [None]
